FAERS Safety Report 12606459 (Version 1)
Quarter: 2016Q3

REPORT INFORMATION
  Report Type: Spontaneous
  Country: US (occurrence: None)
  Receive Date: 20160728
  Receipt Date: 20160728
  Transmission Date: 20161109
  Serious: Yes (Hospitalization)
  Sender: FDA-Public Use
  Company Number: None

PATIENT
  Age: 74 Year
  Sex: Male
  Weight: 76 kg

DRUGS (1)
  1. APIXIBAN, 5 MG BMS [Suspect]
     Active Substance: APIXABAN
     Indication: DEEP VEIN THROMBOSIS
     Route: 048
     Dates: start: 20160613, end: 20160725

REACTIONS (4)
  - Pancreatic carcinoma metastatic [None]
  - Hyperkalaemia [None]
  - Hyponatraemia [None]
  - Malignant neoplasm progression [None]

NARRATIVE: CASE EVENT DATE: 20160725
